FAERS Safety Report 23654833 (Version 1)
Quarter: 2024Q1

REPORT INFORMATION
  Report Type: Spontaneous
  Country: US (occurrence: None)
  Receive Date: 20240319
  Receipt Date: 20240319
  Transmission Date: 20240410
  Serious: Yes (Disabling)
  Sender: FDA-Public Use
  Company Number: None

PATIENT
  Age: 65 Year
  Sex: Male
  Weight: 87.54 kg

DRUGS (2)
  1. DEVICE [Suspect]
     Active Substance: DEVICE
  2. LIDOCAINE [Suspect]
     Active Substance: LIDOCAINE

REACTIONS (6)
  - Cardiac disorder [None]
  - Post-traumatic stress disorder [None]
  - Device malfunction [None]
  - Syringe issue [None]
  - Therapy interrupted [None]
  - Poor quality device used [None]

NARRATIVE: CASE EVENT DATE: 20220228
